FAERS Safety Report 25185892 (Version 2)
Quarter: 2025Q2

REPORT INFORMATION
  Report Type: Report from Study
  Country: US (occurrence: US)
  Receive Date: 20250410
  Receipt Date: 20250415
  Transmission Date: 20250716
  Serious: Yes (Death, Other)
  Sender: GILEAD
  Company Number: US-GILEAD-2025-0709992

PATIENT
  Age: 81 Year
  Sex: Male

DRUGS (4)
  1. AZTREONAM LYSINE [Suspect]
     Active Substance: AZTREONAM LYSINE
     Indication: Pseudomonas infection
     Dosage: INHALE 75MG VIA ALTERA NEBULIZER THREE TIMES DAILY FOR 28 DAYS ON AND 28 DAYS OFF
     Route: 055
     Dates: start: 20240903
  2. MIRTAZAPINE [Concomitant]
     Active Substance: MIRTAZAPINE
  3. SODIUM CHLORIDE [Concomitant]
     Active Substance: SODIUM CHLORIDE
  4. WIXELA INHUB [Concomitant]
     Active Substance: FLUTICASONE PROPIONATE\SALMETEROL XINAFOATE

REACTIONS (2)
  - Death [Fatal]
  - Product use in unapproved indication [Unknown]

NARRATIVE: CASE EVENT DATE: 20250215
